FAERS Safety Report 6258278-8 (Version None)
Quarter: 2009Q3

REPORT INFORMATION
  Report Type: 
  Country: None (occurrence: None)
  Receive Date: 20090707
  Receipt Date: 20090703
  Transmission Date: 20100115
  Serious: Yes (Hospitalization, Other)
  Sender: FDA-Public Use
  Company Number: GB-BRISTOL-MYERS SQUIBB COMPANY-14689269

PATIENT
  Age: 38 Year
  Sex: Female

DRUGS (6)
  1. SUSTIVA [Suspect]
     Indication: HIV INFECTION
  2. TRUVADA [Suspect]
     Indication: ANTIRETROVIRAL THERAPY
     Dosage: 1 DF=TDF 245MG + EMTRICITABINE 200MG, ONE TABLET PER DAY
  3. ATOVAQUONE [Concomitant]
     Indication: ANTIFUNGAL PROPHYLAXIS
  4. LOPERAMIDE HYDROCHLORIDE [Concomitant]
     Indication: DIARRHOEA
  5. CLINDAMYCIN [Concomitant]
  6. PRIMAQUINE [Concomitant]
     Indication: ANTIFUNGAL PROPHYLAXIS

REACTIONS (2)
  - DIARRHOEA [None]
  - RENAL FAILURE [None]
